FAERS Safety Report 8135039-6 (Version None)
Quarter: 2012Q1

REPORT INFORMATION
  Report Type: 
  Country: None (occurrence: None)
  Receive Date: 20120210
  Receipt Date: 20120116
  Transmission Date: 20120608
  Serious: Yes (Hospitalization, Other)
  Sender: FDA-Public Use
  Company Number: VAL_00702_2012

PATIENT

DRUGS (3)
  1. CALCITRIOL [Suspect]
     Indication: IGA NEPHROPATHY
     Dosage: (0.5 UG, 2 TIMES PER WEEK WITH AT LEAST 3 DAYS BETWEEN 2 DOSES)
  2. ANGIOTENSIN CONVERTING ENZYME (ACE) INHIBITOR [Concomitant]
  3. ANGIOTENSIN RECEPTOR BLOCKER (ARB) [Concomitant]

REACTIONS (1)
  - NEPHROLITHIASIS [None]
